FAERS Safety Report 10248847 (Version 2)
Quarter: 2014Q2

REPORT INFORMATION
  Report Type: Spontaneous
  Country: CN (occurrence: CN)
  Receive Date: 20140620
  Receipt Date: 20140620
  Transmission Date: 20141212
  Serious: Yes (Death)
  Sender: FDA-Public Use
  Company Number: CN-JNJFOC-20110605643

PATIENT
  Age: 68 Year
  Sex: Male
  Weight: 60 kg

DRUGS (2)
  1. DUROGESIC D TRANS [Suspect]
     Indication: CANCER PAIN
     Dosage: 8.4MG
     Route: 062
     Dates: start: 20110603, end: 20110610
  2. DUROGESIC D TRANS [Suspect]
     Indication: TUMOUR PAIN
     Dosage: 8.4MG
     Route: 062
     Dates: start: 20110603, end: 20110610

REACTIONS (3)
  - Death [Fatal]
  - Hiccups [Not Recovered/Not Resolved]
  - Somnolence [Not Recovered/Not Resolved]
